FAERS Safety Report 7353767-7 (Version None)
Quarter: 2011Q1

REPORT INFORMATION
  Report Type: 
  Country: None (occurrence: None)
  Receive Date: 20110315
  Receipt Date: 20110303
  Transmission Date: 20110831
  Serious: Yes (Other)
  Sender: FDA-Public Use
  Company Number: FR-GENENTECH-311130

PATIENT
  Sex: Female
  Weight: 42.6 kg

DRUGS (5)
  1. MINIRIN [Concomitant]
     Indication: PRODUCT USED FOR UNKNOWN INDICATION
     Dosage: 300 A?G, TID
  2. SOMATROPIN [Suspect]
     Indication: GROWTH HORMONE DEFICIENCY
     Dosage: 1.6 MG, 6/WEEK
     Route: 058
     Dates: start: 20060524, end: 20091021
  3. LEVOTHYROX [Concomitant]
     Indication: PRODUCT USED FOR UNKNOWN INDICATION
     Dosage: 200 A?G, QD
  4. SOMATROPIN [Suspect]
     Indication: HYPOPITUITARISM
     Dosage: 1.8 MG, 6/WEEK
     Route: 058
     Dates: start: 20100625
  5. HYDROCORTISONE [Concomitant]
     Indication: PRODUCT USED FOR UNKNOWN INDICATION
     Dosage: 20 MG, UNK

REACTIONS (1)
  - CRANIOPHARYNGIOMA [None]
